FAERS Safety Report 4362313-1 (Version None)
Quarter: 2004Q2

REPORT INFORMATION
  Report Type: 
  Country: None (occurrence: None)
  Receive Date: 20040517
  Receipt Date: 20040503
  Transmission Date: 20050107
  Serious: Yes (Hospitalization)
  Sender: FDA-Public Use
  Company Number: 03P-114-0214781-00

PATIENT
  Age: 50 Year
  Sex: Female
  Weight: 75 kg

DRUGS (9)
  1. HUMIRA (ADALIMUMAB) (ADALIMUMAB) [Suspect]
     Indication: RHEUMATOID ARTHRITIS
     Dosage: 1 IN 2 WK, SUBCUTANEOUS
     Route: 058
     Dates: start: 20030204, end: 20030320
  2. METHOTREXATE [Concomitant]
  3. PREDNISONE [Concomitant]
  4. COLECALCIFEROL [Concomitant]
  5. CALCIDO [Concomitant]
  6. OMEPRAZOLE [Concomitant]
  7. CHLORTALIDONE [Concomitant]
  8. FOLIC ACID [Concomitant]
  9. ACETAMINOPHEN [Concomitant]

REACTIONS (4)
  - ARTHRITIS [None]
  - CRYPTOGENIC ORGANIZING PNEUMONIA [None]
  - FEELING ABNORMAL [None]
  - INFECTION [None]
